FAERS Safety Report 8475413-1 (Version None)
Quarter: 2012Q2

REPORT INFORMATION
  Report Type: 
  Country: None (occurrence: None)
  Receive Date: 20120628
  Receipt Date: 20120626
  Transmission Date: 20120825
  Serious: No
  Sender: FDA-Public Use
  Company Number: US-PFIZER INC-2012153958

PATIENT
  Sex: Female
  Weight: 54.422 kg

DRUGS (2)
  1. TOPROL-XL [Concomitant]
     Indication: PALPITATIONS
     Dosage: UNK
  2. LIPITOR [Suspect]
     Indication: BLOOD CHOLESTEROL INCREASED
     Dosage: 20 MG, 1X/DAY
     Route: 048
     Dates: start: 20120601

REACTIONS (3)
  - MYALGIA [None]
  - PAIN [None]
  - ARTHRALGIA [None]
